FAERS Safety Report 4872551-7 (Version None)
Quarter: 2006Q1

REPORT INFORMATION
  Report Type: 
  Country: None (occurrence: None)
  Receive Date: 20060105
  Receipt Date: 20060103
  Transmission Date: 20060701
  Serious: Yes (Death)
  Sender: FDA-Public Use
  Company Number: GB-BOEHRINGER INGELHEIM PHARMACEUTICALS, INC.-2006-UK-00001UK

PATIENT
  Age: 83 Year
  Sex: Male

DRUGS (17)
  1. SPIRIVA [Suspect]
     Indication: CHRONIC OBSTRUCTIVE PULMONARY DISEASE
     Route: 055
     Dates: start: 20051218
  2. OMEPRAZOLE [Concomitant]
     Route: 048
  3. PREDNISOLONE [Concomitant]
     Dosage: 5 MG THREE TIMES DAILY
     Route: 065
  4. QUININE SULPHATE [Concomitant]
     Dosage: 200 MG AT NIGHT
     Route: 065
  5. SALMETEROL [Concomitant]
     Dosage: 25 MCG, 2 PUFFS TWICE DAILY
     Route: 055
  6. FUROSEMIDE [Concomitant]
     Dosage: 40 MG IN THE MORNING
     Route: 065
  7. ISOSORBIDE [Concomitant]
     Route: 065
  8. LACRI-LUBE [Concomitant]
     Dosage: OPHTHALMIC
  9. METOPROLOL [Concomitant]
     Dosage: 50 MG HALF TWICE DAILY
     Route: 065
  10. ALLOPURINOL [Concomitant]
     Route: 065
  11. ATORVASTATIN [Concomitant]
     Route: 065
  12. BETAMETHASONE VALERATE [Concomitant]
     Dosage: TWICE DAILY. STRENGTH 0.1%
     Route: 065
  13. CO-PROXAMOL [Concomitant]
     Dosage: 325/32.5 MG, 2 FOUR TIMES DAILY
     Route: 065
  14. COMBIVENT [Concomitant]
     Dosage: 20/100 MCG, 2 PUFFS 4 TIMES DAILY
     Route: 055
  15. DERMOL [Concomitant]
     Route: 065
  16. DIPROBASE [Concomitant]
     Dosage: PRN
     Route: 065
  17. FUCIDINE CAP [Concomitant]
     Dosage: TDS, 2% STRENGTH.
     Route: 065

REACTIONS (1)
  - CARDIAC ARREST [None]
